FAERS Safety Report 7125658-8 (Version None)
Quarter: 2010Q4

REPORT INFORMATION
  Report Type: 
  Country: None (occurrence: None)
  Receive Date: 20101112
  Receipt Date: 20101105
  Transmission Date: 20110411
  Serious: Yes (Hospitalization)
  Sender: FDA-Public Use
  Company Number: SP03226

PATIENT
  Age: 52 Year
  Sex: Female

DRUGS (1)
  1. OSMOPREP [Suspect]
     Indication: COLONOSCOPY
     Dosage: ORAL
     Route: 048
     Dates: start: 20101026

REACTIONS (5)
  - ANURIA [None]
  - BLOOD ELECTROLYTES ABNORMAL [None]
  - DEHYDRATION [None]
  - OEDEMA [None]
  - OEDEMA PERIPHERAL [None]
